FAERS Safety Report 7262392-8 (Version None)
Quarter: 2011Q1

REPORT INFORMATION
  Report Type: 
  Country: None (occurrence: None)
  Receive Date: 20110119
  Receipt Date: 20110110
  Transmission Date: 20110831
  Serious: Yes (Hospitalization)
  Sender: FDA-Public Use
  Company Number: JPI-P-013434

PATIENT
  Age: 35 Year
  Sex: Female
  Weight: 61.2356 kg

DRUGS (7)
  1. XYREM [Suspect]
     Indication: INSOMNIA
     Dosage: SEE IMAGE
     Route: 048
     Dates: start: 20100902, end: 20100905
  2. XYREM [Suspect]
     Indication: INSOMNIA
     Dosage: SEE IMAGE
     Route: 048
     Dates: start: 20100910, end: 20100101
  3. XYREM [Suspect]
     Indication: INSOMNIA
     Dosage: SEE IMAGE
     Route: 048
     Dates: start: 20100101, end: 20101231
  4. XYREM [Suspect]
     Indication: INSOMNIA
     Dosage: SEE IMAGE
     Route: 048
     Dates: start: 20100829, end: 20100901
  5. XYREM [Suspect]
     Indication: INSOMNIA
     Dosage: SEE IMAGE
     Route: 048
     Dates: start: 20100906, end: 20100909
  6. XYREM [Suspect]
     Indication: INSOMNIA
     Dosage: SEE IMAGE
     Route: 048
     Dates: start: 20110104
  7. BUTALBITAL, ACETAMINOPHEN AND CAFFEINE (TABLETS) [Suspect]
     Indication: MIGRAINE
     Dosage: (1 HR), ORAL
     Route: 048

REACTIONS (6)
  - PALPITATIONS [None]
  - HYPERTENSION [None]
  - CONVULSION [None]
  - ENURESIS [None]
  - THERAPEUTIC RESPONSE DECREASED [None]
  - MIGRAINE [None]
